FAERS Safety Report 4337159-0 (Version None)
Quarter: 2004Q1

REPORT INFORMATION
  Report Type: 
  Country: None (occurrence: None)
  Receive Date: 20040329
  Receipt Date: 20040218
  Transmission Date: 20041129
  Serious: No
  Sender: FDA-Public Use
  Company Number: USA040259624

PATIENT
  Age: 18 Year
  Sex: Male
  Weight: 95 kg

DRUGS (3)
  1. STRATTERA [Suspect]
     Dosage: 80 MG DAY
     Dates: start: 20030201
  2. CLARITIN-D [Concomitant]
  3. ZYRTEC [Concomitant]

REACTIONS (2)
  - DRUG INTERACTION [None]
  - PANIC ATTACK [None]
